FAERS Safety Report 6299799-1 (Version None)
Quarter: 2009Q3

REPORT INFORMATION
  Report Type: 
  Country: None (occurrence: None)
  Receive Date: 20090806
  Receipt Date: 20090728
  Transmission Date: 20100115
  Serious: Yes (Other)
  Sender: FDA-Public Use
  Company Number: GR-GILEAD-E2B_00000336

PATIENT
  Age: 61 Year
  Sex: Female
  Weight: 80 kg

DRUGS (6)
  1. AMBRISENTAN [Suspect]
     Indication: PULMONARY HYPERTENSION
     Dosage: 5MG PER DAY
     Route: 048
     Dates: start: 20090211, end: 20090420
  2. LASIX [Concomitant]
  3. SOLOSA [Concomitant]
     Indication: DIABETES MELLITUS
     Route: 048
     Dates: start: 20050501
  4. DIOVAN [Concomitant]
     Indication: HYPERTENSION
     Route: 048
     Dates: start: 20061001
  5. ISCOVER [Concomitant]
     Indication: CORONARY ARTERY DISEASE
     Route: 048
     Dates: start: 20081101
  6. LIPITOR [Concomitant]
     Indication: HYPERLIPIDAEMIA
     Route: 048
     Dates: start: 20071001

REACTIONS (3)
  - ANGIOEDEMA [None]
  - FACE OEDEMA [None]
  - OEDEMA PERIPHERAL [None]
